FAERS Safety Report 4556983-2 (Version None)
Quarter: 2005Q1

REPORT INFORMATION
  Report Type: 
  Country: None (occurrence: None)
  Receive Date: 20050114
  Receipt Date: 20050105
  Transmission Date: 20050727
  Serious: Yes (Death, Hospitalization, Other)
  Sender: FDA-Public Use
  Company Number: 2004-12-0985

PATIENT
  Sex: Female

DRUGS (1)
  1. INTRON A [Suspect]
     Indication: RENAL CELL CARCINOMA STAGE UNSPECIFIED
     Dosage: 3XWK

REACTIONS (8)
  - ABNORMAL BEHAVIOUR [None]
  - BALANCE DISORDER [None]
  - CONFUSIONAL STATE [None]
  - DISORIENTATION [None]
  - METASTASIS [None]
  - NEOPLASM [None]
  - OVARIAN CYST [None]
  - SCREAMING [None]
